FAERS Safety Report 7756846-5 (Version None)
Quarter: 2011Q3

REPORT INFORMATION
  Report Type: 
  Country: None (occurrence: None)
  Receive Date: 20110916
  Receipt Date: 20110908
  Transmission Date: 20111222
  Serious: Yes (Other)
  Sender: FDA-Public Use
  Company Number: GR-GLAXOSMITHKLINE-B0674856A

PATIENT
  Age: 38 Year
  Sex: Male

DRUGS (1)
  1. ALLI [Suspect]
     Indication: OBESITY
     Dosage: 60MG PER DAY
     Route: 048
     Dates: start: 20100526, end: 20100612

REACTIONS (6)
  - FLATULENCE [None]
  - GASTROINTESTINAL HYPERMOTILITY [None]
  - PAIN [None]
  - RECTAL DISCHARGE [None]
  - HAEMORRHOIDS [None]
  - HAEMORRHOIDAL HAEMORRHAGE [None]
